FAERS Safety Report 4870072-9 (Version None)
Quarter: 2005Q4

REPORT INFORMATION
  Report Type: 
  Country: None (occurrence: None)
  Receive Date: 20051229
  Receipt Date: 20051229
  Transmission Date: 20060501
  Serious: Yes (Hospitalization, Other)
  Sender: FDA-Public Use
  Company Number: None

PATIENT
  Sex: Male
  Weight: 76.2 kg

DRUGS (3)
  1. DOCETAXEL [Suspect]
     Indication: NON-SMALL CELL LUNG CANCER
     Dosage: SEE IMAGE
     Dates: start: 20051215, end: 20051215
  2. BNP7787 [Suspect]
     Dosage: SEE IMAGE
     Dates: start: 20051215
  3. CISPLATIN [Suspect]
     Dosage: SEE IMAGE
     Dates: start: 20051215

REACTIONS (3)
  - DIARRHOEA [None]
  - MENTAL STATUS CHANGES [None]
  - PNEUMONIA [None]
